FAERS Safety Report 9949384 (Version 1)
Quarter: 2014Q1

REPORT INFORMATION
  Report Type: Spontaneous
  Country: US (occurrence: US)
  Receive Date: 20140304
  Receipt Date: 20140304
  Transmission Date: 20141002
  Serious: No
  Sender: FDA-Public Use
  Company Number: US-PFIZER INC-2014059428

PATIENT
  Age: 61 Year
  Sex: Female

DRUGS (28)
  1. LYRICA [Suspect]
     Dosage: 100 MG, 3X/DAY
     Route: 048
  2. SPIRIVA [Suspect]
     Dosage: 18 UG, DAILY
     Route: 048
  3. METOPROLOL TARTRATE [Concomitant]
     Dosage: 12.5 MG, DAIL
  4. HUMULIN R [Concomitant]
     Dosage: 150
  5. HUMULIN R [Concomitant]
     Dosage: 200
  6. HUMULIN R [Concomitant]
     Dosage: 250
  7. HUMULIN R [Concomitant]
     Dosage: 300
  8. HUMULIN R [Concomitant]
     Dosage: 350
  9. HUMULIN R [Concomitant]
     Dosage: 400
  10. HUMULIN R [Concomitant]
     Dosage: 450
  11. HUMULIN R [Concomitant]
     Dosage: 500
  12. HUMULIN R [Concomitant]
     Dosage: 550
  13. PROMETHAZINE HYDROCHLORIDE [Concomitant]
     Dosage: 25 MG, EVERY 4-6 HOURS PRN
  14. MORPHINE SULFATE ER [Concomitant]
     Dosage: 15 MG, EVERY 4 HOURS PRN
  15. PALONOSETRON [Concomitant]
     Indication: CHEMOTHERAPY
     Dosage: UNK
  16. APREPITANT [Concomitant]
     Indication: CHEMOTHERAPY
     Dosage: UNK
  17. MIRALAX [Concomitant]
     Dosage: 17 G, DAILY
  18. OMEPRAZOLE [Concomitant]
     Dosage: 20 MG, 1X/DAY
  19. GLIPIZIDE [Concomitant]
     Dosage: 5 MG, DAILY
     Route: 048
  20. LASIX [Concomitant]
     Dosage: 20 MG, 2X/DAY
     Route: 048
  21. KLOR-CON [Concomitant]
     Dosage: 10 MEQ, DAILY
     Route: 048
  22. DILTIAZEM HCL [Concomitant]
     Dosage: 120 MG, DAILY
     Route: 048
  23. ADVAIR DISKUS [Concomitant]
     Dosage: 1 DF, 2X/DAY (500-50 MCG/DOSE, 1 PUFF BID)
  24. PROVENTIL HFA [Concomitant]
     Dosage: 17 G, 4X/DAY (8.5 GM TWO INHALATIONS FOUR TIMES DAILY)
  25. THEOPHYLLINE [Concomitant]
     Dosage: 200 MG, 2X/DAY
     Route: 048
  26. CIPRO [Concomitant]
     Dosage: 500 MG, 2X/DAY
  27. DEXAMETHASONE [Concomitant]
     Dosage: 4 MG, 2X/DAY
  28. HYDROCODONE W/ACETAMINOPHEN [Concomitant]
     Indication: PAIN
     Dosage: 10-325 MG ONE Q4H PRN

REACTIONS (5)
  - Upper respiratory tract infection [Unknown]
  - Productive cough [Unknown]
  - Rhinorrhoea [Unknown]
  - Nasal congestion [Unknown]
  - Pain [Unknown]
